FAERS Safety Report 18725457 (Version 1)
Quarter: 2021Q1

REPORT INFORMATION
  Report Type: Spontaneous
  Country: GB (occurrence: GB)
  Receive Date: 20210111
  Receipt Date: 20210111
  Transmission Date: 20210419
  Serious: Yes (Other)
  Sender: FDA-Public Use
  Company Number: GB-PFIZER INC-2021004190

PATIENT
  Sex: Female

DRUGS (5)
  1. ESTRADIOL. [Suspect]
     Active Substance: ESTRADIOL
     Dosage: UNK
  2. ESTRADIOL. [Suspect]
     Active Substance: ESTRADIOL
     Dosage: UNK
  3. ESTRADIOL / NORETHINDRONE ACETATE [Suspect]
     Active Substance: ESTRADIOL\NORETHINDRONE ACETATE
     Dosage: UNK
  4. ESTRADIOL. [Suspect]
     Active Substance: ESTRADIOL
     Dosage: UNK
  5. ESTRADIOL. [Suspect]
     Active Substance: ESTRADIOL
     Dosage: UNK

REACTIONS (37)
  - Drug ineffective [Unknown]
  - Underdose [Unknown]
  - Hot flush [Unknown]
  - Metrorrhagia [Unknown]
  - Vulvovaginal dryness [Unknown]
  - Dermatitis allergic [Unknown]
  - Dysmenorrhoea [Unknown]
  - Poor quality product administered [Unknown]
  - Hyperhidrosis [Unknown]
  - Anxiety [Unknown]
  - Breast pain [Unknown]
  - Palpitations [Unknown]
  - Abdominal pain upper [Unknown]
  - Insomnia [Unknown]
  - Off label use [Unknown]
  - Affective disorder [Unknown]
  - Dizziness [Unknown]
  - Nausea [Unknown]
  - Depressed mood [Unknown]
  - Headache [Unknown]
  - Mood swings [Unknown]
  - Dry throat [Unknown]
  - Night sweats [Unknown]
  - Arthralgia [Unknown]
  - Dry eye [Unknown]
  - Feeling hot [Unknown]
  - Pain [Unknown]
  - Sleep disorder [Unknown]
  - Weight decreased [Unknown]
  - Fatigue [Unknown]
  - Haemorrhage [Unknown]
  - Product quality issue [Unknown]
  - Feeling abnormal [Unknown]
  - Menorrhagia [Unknown]
  - Drug intolerance [Unknown]
  - Migraine [Unknown]
  - Urethral pain [Unknown]
